FAERS Safety Report 10336820 (Version 1)
Quarter: 2014Q3

REPORT INFORMATION
  Report Type: Spontaneous
  Country: US (occurrence: US)
  Receive Date: 20140723
  Receipt Date: 20140723
  Transmission Date: 20150326
  Serious: No
  Sender: FDA-Public Use
  Company Number: US-UNITED THERAPEUTICS-UTC-044246

PATIENT
  Age: 52 Year
  Sex: Female

DRUGS (10)
  1. TRACLEER [Concomitant]
     Active Substance: BOSENTAN\BOSENTAN MONOHYDRATE
  2. EFFEXOR XR [Concomitant]
     Active Substance: VENLAFAXINE HYDROCHLORIDE
  3. ADCIRCA [Concomitant]
     Active Substance: TADALAFIL
  4. LISINOPRIL. [Concomitant]
     Active Substance: LISINOPRIL
  5. ADVAIR HFA [Concomitant]
     Active Substance: FLUTICASONE PROPIONATE\SALMETEROL XINAFOATE
  6. PREVACID [Concomitant]
     Active Substance: LANSOPRAZOLE
  7. BUMETANIDE. [Concomitant]
     Active Substance: BUMETANIDE
  8. TYVASO [Suspect]
     Active Substance: TREPROSTINIL
     Dates: start: 20130404
  9. WARFARIN [Concomitant]
     Active Substance: WARFARIN
  10. CITALOPRAM [Concomitant]
     Active Substance: CITALOPRAM HYDROBROMIDE

REACTIONS (1)
  - Palpitations [Not Recovered/Not Resolved]

NARRATIVE: CASE EVENT DATE: 20140124
